FAERS Safety Report 23722842 (Version 1)
Quarter: 2024Q2

REPORT INFORMATION
  Report Type: Spontaneous
  Country: FR (occurrence: FR)
  Receive Date: 20240409
  Receipt Date: 20240409
  Transmission Date: 20240715
  Serious: Yes (Other)
  Sender: FDA-Public Use
  Company Number: None

PATIENT
  Age: 63 Year
  Sex: Female

DRUGS (4)
  1. PACLITAXEL [Suspect]
     Active Substance: PACLITAXEL
     Indication: Large cell lung cancer
     Dosage: NOT KNOWN
     Route: 042
     Dates: start: 202312, end: 202312
  2. CARBOPLATIN [Suspect]
     Active Substance: CARBOPLATIN
     Indication: Large cell lung cancer
     Dosage: NOT KNOWN
     Route: 042
     Dates: start: 202312, end: 202312
  3. METOPROLOL TARTRATE [Suspect]
     Active Substance: METOPROLOL TARTRATE
     Indication: Atrial fibrillation
     Route: 048
  4. KEYTRUDA [Suspect]
     Active Substance: PEMBROLIZUMAB
     Indication: Large cell lung cancer
     Dosage: NOT KNOWN,,
     Route: 042
     Dates: start: 202311, end: 202312

REACTIONS (2)
  - Neuropathy peripheral [Not Recovered/Not Resolved]
  - Raynaud^s phenomenon [Not Recovered/Not Resolved]

NARRATIVE: CASE EVENT DATE: 20240101
